FAERS Safety Report 8256021-4 (Version None)
Quarter: 2012Q2

REPORT INFORMATION
  Report Type: 
  Country: None (occurrence: None)
  Receive Date: 20120403
  Receipt Date: 20120305
  Transmission Date: 20120825
  Serious: No
  Sender: FDA-Public Use
  Company Number: US-AMGEN-USASP2011057102

PATIENT
  Age: 81 Year
  Sex: Female
  Weight: 79 kg

DRUGS (3)
  1. PROLIA [Suspect]
     Indication: OSTEOPOROSIS POSTMENOPAUSAL
     Dosage: 60 MG, Q6MO
     Route: 058
     Dates: start: 20110822
  2. URSODIOL [Concomitant]
     Dosage: UNK
  3. INFLUENZA VACCINE [Concomitant]
     Dosage: UNK
     Dates: start: 20111020

REACTIONS (5)
  - MUSCULOSKELETAL STIFFNESS [None]
  - INSOMNIA [None]
  - MYALGIA [None]
  - HYPOAESTHESIA [None]
  - ARTHRALGIA [None]
